FAERS Safety Report 7860567-8 (Version None)
Quarter: 2011Q4

REPORT INFORMATION
  Report Type: 
  Country: None (occurrence: None)
  Receive Date: 20111027
  Receipt Date: 20111017
  Transmission Date: 20120403
  Serious: Yes (Hospitalization)
  Sender: FDA-Public Use
  Company Number: US-BAYER-2011-006229

PATIENT
  Age: 46 Year
  Sex: Female
  Weight: 92.1 kg

DRUGS (7)
  1. ZOMIG [Concomitant]
     Indication: MIGRAINE
     Dosage: UNK
     Route: 048
     Dates: start: 19990101
  2. HERBAL PREPARATION [Concomitant]
     Route: 048
  3. IBUPROFEN [Concomitant]
     Dosage: UNK UNK, PRN
     Route: 048
  4. MULTI-VITAMINS [Concomitant]
     Dosage: UNK UNK, QD
     Route: 048
  5. DARVOCET-N 50 [Concomitant]
     Indication: MIGRAINE
     Dosage: UNK UNK, QID
     Route: 048
     Dates: start: 20090402
  6. MIDRIN [Concomitant]
     Indication: MIGRAINE
     Dosage: UNK
     Route: 048
     Dates: start: 19990101
  7. YAZ [Suspect]
     Indication: CONTRACEPTION
     Dosage: UNK
     Dates: start: 20090402

REACTIONS (4)
  - PAIN [None]
  - PULMONARY EMBOLISM [None]
  - DEEP VEIN THROMBOSIS [None]
  - EMOTIONAL DISTRESS [None]
